FAERS Safety Report 8121222-2 (Version None)
Quarter: 2012Q1

REPORT INFORMATION
  Report Type: 
  Country: None (occurrence: None)
  Receive Date: 20120208
  Receipt Date: 20120130
  Transmission Date: 20120608
  Serious: Yes (Hospitalization, Other)
  Sender: FDA-Public Use
  Company Number: US-BAYER-201041579NA

PATIENT
  Age: 28 Year
  Sex: Female
  Weight: 79.365 kg

DRUGS (3)
  1. HYDROCHLOROTHIAZIDE [Concomitant]
     Indication: DIURETIC THERAPY
     Dosage: 1 TABLET DAILY
     Route: 048
     Dates: start: 20090416
  2. DROSPIRENONE AND ETHINYL ESTRADIOL [Suspect]
     Indication: CONTRACEPTION
     Dosage: UNK
     Route: 048
     Dates: start: 20090401, end: 20090801
  3. METFORMIN HCL [Concomitant]
     Indication: INSULIN RESISTANCE
     Dosage: 1 TABLET DAILY
     Route: 048
     Dates: start: 20090625

REACTIONS (3)
  - ABDOMINAL DISTENSION [None]
  - CHOLECYSTITIS CHRONIC [None]
  - PAIN [None]
